FAERS Safety Report 7773935-X (Version None)
Quarter: 2011Q3

REPORT INFORMATION
  Report Type: 
  Country: None (occurrence: None)
  Receive Date: 20110921
  Receipt Date: 20110525
  Transmission Date: 20111222
  Serious: Yes (Hospitalization)
  Sender: FDA-Public Use
  Company Number: UTC-007428

PATIENT
  Age: 80 Year
  Sex: Male

DRUGS (1)
  1. TYVASO [Suspect]
     Indication: PULMONARY ARTERIAL HYPERTENSION
     Dosage: 18-54  MCG (4 MCG IN 1 D), INHALATION
     Route: 055
     Dates: start: 20100107

REACTIONS (1)
  - ACUTE RESPIRATORY FAILURE [None]
